FAERS Safety Report 4395809-7 (Version None)
Quarter: 2004Q3

REPORT INFORMATION
  Report Type: 
  Country: None (occurrence: None)
  Receive Date: 20040713
  Receipt Date: 20040706
  Transmission Date: 20050211
  Serious: Yes (Hospitalization)
  Sender: FDA-Public Use
  Company Number: US-ROCHE-373702

PATIENT
  Age: 43 Year
  Sex: Female

DRUGS (4)
  1. VALIUM [Suspect]
     Indication: MUSCLE SPASMS
     Dosage: AS NEEDED
     Route: 048
     Dates: start: 20040602
  2. DURAGESIC [Suspect]
     Dosage: 100 UG/HR
     Route: 062
     Dates: start: 20040602, end: 20040610
  3. DURAGESIC [Suspect]
     Dosage: 100 UG/HR
     Route: 062
     Dates: start: 20040610
  4. DEMEROL [Suspect]
     Route: 048
     Dates: start: 20040602, end: 20040609

REACTIONS (3)
  - AMNESIA [None]
  - LOSS OF CONSCIOUSNESS [None]
  - ROAD TRAFFIC ACCIDENT [None]
